FAERS Safety Report 20444213 (Version 2)
Quarter: 2022Q1

REPORT INFORMATION
  Report Type: Spontaneous
  Country: US (occurrence: US)
  Receive Date: 20220208
  Receipt Date: 20220217
  Transmission Date: 20220424
  Serious: No
  Sender: FDA-Public Use
  Company Number: US-GLAXOSMITHKLINE-US2022AMR019761

PATIENT
  Sex: Female

DRUGS (1)
  1. ZEJULA [Suspect]
     Active Substance: NIRAPARIB
     Indication: Ovarian cancer
     Dosage: 200 MG, QD
     Dates: start: 20220112, end: 20220127

REACTIONS (5)
  - Nausea [Unknown]
  - Dizziness [Unknown]
  - Muscular weakness [Unknown]
  - Insomnia [Unknown]
  - Adverse reaction [Unknown]
